FAERS Safety Report 14032654 (Version 1)
Quarter: 2017Q4

REPORT INFORMATION
  Report Type: Spontaneous
  Country: US (occurrence: US)
  Receive Date: 20171002
  Receipt Date: 20171002
  Transmission Date: 20180321
  Serious: No
  Sender: FDA-Public Use
  Company Number: US-PFIZER INC-2017421770

PATIENT
  Age: 34 Year
  Sex: Male

DRUGS (1)
  1. PROMETHAZINE HCL [Suspect]
     Active Substance: PROMETHAZINE HYDROCHLORIDE
     Dosage: UNK

REACTIONS (2)
  - Dystonia [Unknown]
  - Drug hypersensitivity [Unknown]
